FAERS Safety Report 15057192 (Version 1)
Quarter: 2018Q2

REPORT INFORMATION
  Report Type: Report from Study
  Country: JP (occurrence: JP)
  Receive Date: 20180624
  Receipt Date: 20180624
  Transmission Date: 20180711
  Serious: Yes (Other)
  Sender: FDA-Public Use
  Company Number: JP-BEH-2018091989

PATIENT
  Sex: Female
  Weight: 47.5 kg

DRUGS (21)
  1. LIXIANA [Concomitant]
     Active Substance: EDOXABAN TOSYLATE
     Dosage: 30 MG, UNK
     Route: 048
     Dates: start: 20180131
  2. CANDESARTAN. [Concomitant]
     Active Substance: CANDESARTAN
     Route: 048
  3. AMLODIPINE [Concomitant]
     Active Substance: AMLODIPINE BESYLATE
     Route: 048
  4. METHYCOBAL [Concomitant]
     Active Substance: METHYLCOBALAMIN
     Route: 048
  5. RISEDRONATE [Concomitant]
     Active Substance: RISEDRONATE SODIUM
     Route: 048
  6. HISHIPHAGEN C [Concomitant]
     Dosage: UNK
     Route: 065
     Dates: start: 20180206, end: 20180213
  7. BERIPLEX P/N [Suspect]
     Active Substance: COAGULATION FACTOR IX HUMAN\COAGULATION FACTOR VII HUMAN\COAGULATION FACTOR X HUMAN\PROTEIN C\PROTEIN S HUMAN\PROTHROMBIN
     Indication: HAEMORRHAGE
     Dosage: 500 IU, UNK
     Route: 042
     Dates: start: 20180123
  8. KAYTWO N [Concomitant]
     Active Substance: MENATETRENONE
     Dosage: 20 MG, UNK
     Route: 042
     Dates: start: 20180122, end: 20180122
  9. WARFARIN [Concomitant]
     Active Substance: WARFARIN
     Indication: DEEP VEIN THROMBOSIS
     Dosage: 3.5 MG, UNK
     Route: 048
  10. EVOXAC [Concomitant]
     Active Substance: CEVIMELINE HYDROCHLORIDE
     Dosage: UNK
     Route: 048
     Dates: end: 20180122
  11. NASIVIN [Concomitant]
     Active Substance: OXYMETAZOLINE
     Dosage: UNK
     Route: 065
     Dates: end: 20180122
  12. HEPARIN [Concomitant]
     Active Substance: HEPARIN SODIUM
     Indication: DEEP VEIN THROMBOSIS
     Dosage: 6000 IU, UNK
     Route: 065
     Dates: start: 20180126, end: 20180131
  13. PRAVASTATIN. [Concomitant]
     Active Substance: PRAVASTATIN
     Route: 048
  14. CALONAL [Concomitant]
     Active Substance: ACETAMINOPHEN
     Dosage: UNK
     Route: 048
     Dates: start: 20180124, end: 20180205
  15. SANBETASON [Concomitant]
     Active Substance: DEXAMETHASONE
     Dosage: UNK
     Route: 065
     Dates: end: 20180122
  16. MAGMITT [Concomitant]
     Active Substance: MAGNESIUM OXIDE
     Dosage: UNK
     Route: 048
     Dates: start: 20180201
  17. SEPAMIT-R [Concomitant]
     Active Substance: NIFEDIPINE
     Dosage: UNK
     Route: 048
     Dates: start: 20180123, end: 20180131
  18. LANSOPRAZOLE. [Concomitant]
     Active Substance: LANSOPRAZOLE
     Route: 048
  19. URSO [Concomitant]
     Active Substance: URSODIOL
     Dosage: UNK
     Route: 048
     Dates: start: 20180207
  20. CEFTRIAXONE. [Concomitant]
     Active Substance: CEFTRIAXONE
     Dosage: UNK
     Route: 065
     Dates: start: 20180206, end: 20180213
  21. BAYASPIRIN [Concomitant]
     Active Substance: ASPIRIN
     Dosage: UNK
     Route: 048
     Dates: end: 20180122

REACTIONS (1)
  - Pneumonia aspiration [Recovering/Resolving]
